FAERS Safety Report 8976905 (Version 1)
Quarter: 2012Q4

REPORT INFORMATION
  Report Type: 
  Country: US (occurrence: US)
  Receive Date: 20121220
  Receipt Date: 20121220
  Transmission Date: 20130627
  Serious: No
  Sender: FDA-Public Use
  Company Number: US-GLAXOSMITHKLINE-A0996677A

PATIENT
  Age: 81 Year
  Sex: Female

DRUGS (13)
  1. RYTHMOL [Suspect]
     Indication: ARRHYTHMIA
     Dosage: 150MG Unknown
     Route: 048
  2. DILTIAZEM [Concomitant]
  3. ISOSORBIDE [Concomitant]
  4. MAGNESIUM [Concomitant]
  5. PLAVIX [Concomitant]
  6. NITROGLYCERIN [Concomitant]
  7. VITAMIN D [Concomitant]
  8. VITAMIN B [Concomitant]
  9. CALCIUM [Concomitant]
  10. TYLENOL [Concomitant]
  11. ASPIRIN [Concomitant]
  12. DEPAKOTE [Concomitant]
  13. PRAVASTATIN [Concomitant]

REACTIONS (1)
  - Chest pain [Not Recovered/Not Resolved]
